FAERS Safety Report 11143043 (Version 2)
Quarter: 2015Q2

REPORT INFORMATION
  Report Type: Spontaneous
  Country: DE (occurrence: DE)
  Receive Date: 20150528
  Receipt Date: 20150603
  Transmission Date: 20150821
  Serious: No
  Sender: FDA-Public Use
  Company Number: DE-AMGEN-DEUSP2015050668

PATIENT
  Age: 67 Year
  Sex: Female

DRUGS (1)
  1. PROLIA [Suspect]
     Active Substance: DENOSUMAB
     Indication: OSTEOPOROSIS
     Dosage: UNK
     Route: 065

REACTIONS (6)
  - Mobility decreased [Recovering/Resolving]
  - Spinal pain [Unknown]
  - Skin disorder [Unknown]
  - Gastric disorder [Unknown]
  - Pain in jaw [Unknown]
  - Myalgia [Recovering/Resolving]
